FAERS Safety Report 19381038 (Version 1)
Quarter: 2021Q2

REPORT INFORMATION
  Report Type: Spontaneous
  Country: US (occurrence: US)
  Receive Date: 20210607
  Receipt Date: 20210607
  Transmission Date: 20210717
  Serious: Yes (Other)
  Sender: FDA-Public Use
  Company Number: US-AUROBINDO-AUR-APL-2020-046016

PATIENT
  Age: 91 Year
  Sex: Male
  Weight: 108.8 kg

DRUGS (2)
  1. PRADAXA [Concomitant]
     Active Substance: DABIGATRAN ETEXILATE MESYLATE
     Indication: PRODUCT USED FOR UNKNOWN INDICATION
     Dosage: UNK
     Route: 065
  2. VENLAFAXINE HYDROCHLORIDE EXTENDED?RELEASE CAPSULES 37.5MG [Suspect]
     Active Substance: VENLAFAXINE HYDROCHLORIDE
     Indication: DEPRESSION
     Dosage: 1 DOSAGE FORM, ONCE A DAY
     Route: 065
     Dates: start: 20200820, end: 20200823

REACTIONS (13)
  - Feeding disorder [Recovered/Resolved]
  - Muscular weakness [Recovered/Resolved]
  - Apathy [Recovered/Resolved]
  - Grip strength decreased [Recovered/Resolved]
  - Dysstasia [Recovered/Resolved]
  - Abnormal behaviour [Recovered/Resolved]
  - Disturbance in attention [Recovered/Resolved]
  - Gait disturbance [Recovered/Resolved]
  - Asthenia [Recovered/Resolved]
  - Hallucination [Recovered/Resolved]
  - Delusion [Recovered/Resolved]
  - Mastication disorder [Recovered/Resolved]
  - Distractibility [Recovered/Resolved]

NARRATIVE: CASE EVENT DATE: 20200822
